APPROVED DRUG PRODUCT: VALPROIC ACID
Active Ingredient: VALPROIC ACID
Strength: 250MG
Dosage Form/Route: CAPSULE;ORAL
Application: A070631 | Product #001
Applicant: CHARTWELL RX SCIENCES LLC
Approved: Jun 11, 1987 | RLD: No | RS: No | Type: DISCN